FAERS Safety Report 5225739-X (Version None)
Quarter: 2007Q1

REPORT INFORMATION
  Report Type: 
  Country: None (occurrence: None)
  Receive Date: 20070131
  Receipt Date: 20070131
  Transmission Date: 20070707
  Serious: Yes (Other)
  Sender: FDA-Public Use
  Company Number: None

PATIENT
  Sex: Male
  Weight: 57.38 kg

DRUGS (1)
  1. PANTOPRAZOLE SODIUM [Suspect]
     Indication: PROPHYLAXIS
     Dosage: 40 MG ONCE DAILY BY MOUTH
     Route: 048
     Dates: start: 20061215, end: 20070110

REACTIONS (1)
  - HYPERBILIRUBINAEMIA [None]
